FAERS Safety Report 8978142 (Version 1)
Quarter: 2012Q4

REPORT INFORMATION
  Report Type: 
  Country: NO (occurrence: NO)
  Receive Date: 20121220
  Receipt Date: 20121220
  Transmission Date: 20130627
  Serious: Yes (Hospitalization)
  Sender: FDA-Public Use
  Company Number: PHHY2012NO116438

PATIENT
  Sex: Male

DRUGS (7)
  1. IRINOTECAN [Suspect]
     Indication: COLON CANCER
     Dosage: 280 mg, UNK
     Dates: start: 20121105
  2. AVASTIN [Suspect]
     Indication: COLON CANCER
     Dosage: 350 mg, UNK
     Dates: start: 20121105
  3. FLUOROURACIL [Suspect]
     Indication: COLON CANCER
     Dosage: 800 mg, UNK
     Dates: start: 20121105
  4. CALCIUM FOLINATE [Concomitant]
     Dosage: 100 mg, UNK
     Dates: start: 20121105
  5. ATROPINE [Concomitant]
     Dosage: 0.5 mg, UNK
     Dates: start: 20121105
  6. ONDANSETRON [Concomitant]
     Dates: start: 20121105
  7. FORTECORTIN [Concomitant]
     Dates: start: 20121105

REACTIONS (3)
  - Muscular weakness [Recovering/Resolving]
  - Muscle twitching [Recovered/Resolved]
  - Fatigue [Recovering/Resolving]
